FAERS Safety Report 16535581 (Version 3)
Quarter: 2019Q4

REPORT INFORMATION
  Report Type: Spontaneous
  Country: JP (occurrence: JP)
  Receive Date: 20190705
  Receipt Date: 20191119
  Transmission Date: 20200122
  Serious: Yes (Hospitalization, Other)
  Sender: FDA-Public Use
  Company Number: JP-BRISTOL-MYERS SQUIBB COMPANY-BMS-2019-065206

PATIENT
  Age: 71 Year
  Sex: Male
  Weight: 50 kg

DRUGS (8)
  1. CEPHARANTHINE [Concomitant]
     Active Substance: CEPHARANTHINE
     Indication: HEAD AND NECK CANCER
     Dosage: 1 MILLIGRAM, Q8H
     Route: 048
     Dates: start: 20181106
  2. OPDIVO [Suspect]
     Active Substance: NIVOLUMAB
     Indication: HEAD AND NECK CANCER
     Dosage: 240 MG
     Route: 041
     Dates: start: 20190117, end: 20190627
  3. SENNOSIDE [SENNOSIDE A+B CALCIUM] [Concomitant]
     Active Substance: SENNOSIDES A AND B
     Indication: HEAD AND NECK CANCER
     Dosage: 24 MILLIGRAM, QD
     Route: 048
     Dates: start: 20190425
  4. NEXIUM I.V. [Concomitant]
     Active Substance: ESOMEPRAZOLE SODIUM
     Indication: HEAD AND NECK CANCER
     Dosage: 20 MILLIGRAM, QD
     Route: 048
     Dates: start: 20180829
  5. MIYA-BM [Concomitant]
     Active Substance: CLOSTRIDIUM BUTYRICUM SPORES STRAIN M-55
     Indication: PRODUCT USED FOR UNKNOWN INDICATION
     Dosage: 1 GRAM
     Route: 048
     Dates: start: 20180907
  6. HALCION [Concomitant]
     Active Substance: TRIAZOLAM
     Indication: PRODUCT USED FOR UNKNOWN INDICATION
     Dosage: 0.25 MILLIGRAM, QD
     Route: 048
     Dates: start: 20181113
  7. OXYCONTIN TR [Concomitant]
     Active Substance: OXYCODONE HYDROCHLORIDE
     Indication: HEAD AND NECK CANCER
     Dosage: 10 MILLIGRAM, Q12H
     Route: 048
     Dates: start: 20180828, end: 20190728
  8. CALONAL [Concomitant]
     Active Substance: ACETAMINOPHEN
     Indication: HEAD AND NECK CANCER
     Dosage: 500 MILLIGRAM, Q6H
     Route: 065
     Dates: start: 20180829, end: 20190605

REACTIONS (1)
  - Cholangitis sclerosing [Recovering/Resolving]

NARRATIVE: CASE EVENT DATE: 20190523
